FAERS Safety Report 10370836 (Version 1)
Quarter: 2014Q3

REPORT INFORMATION
  Report Type: Spontaneous
  Country: US (occurrence: US)
  Receive Date: 20140808
  Receipt Date: 20140808
  Transmission Date: 20150326
  Serious: No
  Sender: FDA-Public Use
  Company Number: US-GLAXOSMITHKLINE-A1045248A

PATIENT
  Age: 84 Year
  Sex: Female

DRUGS (4)
  1. BECONASE AQ [Suspect]
     Active Substance: BECLOMETHASONE DIPROPIONATE MONOHYDRATE
     Indication: PRODUCT USED FOR UNKNOWN INDICATION
     Dosage: 2PUFF PER DAY
     Route: 045
     Dates: start: 20121105
  2. PROTONIX [Concomitant]
     Active Substance: PANTOPRAZOLE SODIUM
  3. PREMARIN CREAM [Concomitant]
  4. BACTROBAN [Concomitant]
     Active Substance: MUPIROCIN\MUPIROCIN CALCIUM

REACTIONS (3)
  - Product quality issue [Unknown]
  - Nasal discomfort [Not Recovered/Not Resolved]
  - Nasal dryness [Unknown]

NARRATIVE: CASE EVENT DATE: 201310
